FAERS Safety Report 8499620-7 (Version None)
Quarter: 2012Q3

REPORT INFORMATION
  Report Type: 
  Country: None (occurrence: None)
  Receive Date: 20120710
  Receipt Date: 20120627
  Transmission Date: 20120928
  Serious: Yes (Death)
  Sender: FDA-Public Use
  Company Number: JP-ASTELLAS-2012US004322

PATIENT
  Sex: Male

DRUGS (4)
  1. AMBISOME [Suspect]
     Indication: SEPTIC SHOCK
  2. INOVAN                             /00360702/ [Concomitant]
     Indication: PRODUCT USED FOR UNKNOWN INDICATION
     Dosage: UNK
     Route: 065
     Dates: start: 20120315, end: 20120315
  3. AMBISOME [Suspect]
     Indication: FUNGAL INFECTION
     Dosage: 150 MG, UID/QD
     Route: 041
     Dates: start: 20120316, end: 20120322
  4. MEROPEN                            /01250501/ [Concomitant]
     Indication: PRODUCT USED FOR UNKNOWN INDICATION
     Dosage: UNK
     Route: 065
     Dates: start: 20120315, end: 20120322

REACTIONS (1)
  - HYPERBILIRUBINAEMIA [None]
